FAERS Safety Report 7553761-7 (Version None)
Quarter: 2011Q2

REPORT INFORMATION
  Report Type: 
  Country: None (occurrence: None)
  Receive Date: 20110617
  Receipt Date: 20110609
  Transmission Date: 20111010
  Serious: Yes (Other)
  Sender: FDA-Public Use
  Company Number: JP-ASTELLAS-2011JP003874

PATIENT
  Age: 5 Year
  Sex: Female

DRUGS (3)
  1. PROGRAF [Suspect]
     Indication: IMMUNOSUPPRESSANT DRUG THERAPY
     Route: 065
  2. CORTICOSTEROIDS [Concomitant]
     Indication: IMMUNOSUPPRESSANT DRUG THERAPY
     Route: 065
  3. MYCOPHENOLATE MEFETIL [Concomitant]
     Indication: IMMUNOSUPPRESSANT DRUG THERAPY
     Dosage: UNK
     Route: 048

REACTIONS (5)
  - HYPERTENSION [None]
  - NEPHROTIC SYNDROME [None]
  - RENAL IMPAIRMENT [None]
  - CYTOMEGALOVIRUS INFECTION [None]
  - OTITIS MEDIA [None]
